FAERS Safety Report 6582442-1 (Version None)
Quarter: 2010Q1

REPORT INFORMATION
  Report Type: 
  Country: None (occurrence: None)
  Receive Date: 20100216
  Receipt Date: 20100203
  Transmission Date: 20100710
  Serious: Yes (Hospitalization, Disabling)
  Sender: FDA-Public Use
  Company Number: PHHY2010DE06819

PATIENT
  Sex: Female

DRUGS (2)
  1. ACLASTA/ZOLEDRONATE T29581+A++OS [Suspect]
     Dosage: 5 MG ONCE YEARLY
     Route: 042
     Dates: start: 20091202, end: 20091202
  2. FENTANYL [Concomitant]
     Indication: PAIN

REACTIONS (5)
  - AKATHISIA [None]
  - DIZZINESS [None]
  - MIOSIS [None]
  - NAUSEA [None]
  - TREMOR [None]
